FAERS Safety Report 7207090-1 (Version None)
Quarter: 2011Q1

REPORT INFORMATION
  Report Type: 
  Country: None (occurrence: None)
  Receive Date: 20110103
  Receipt Date: 20101229
  Transmission Date: 20110831
  Serious: Yes (Other)
  Sender: FDA-Public Use
  Company Number: B0691840A

PATIENT
  Sex: Female

DRUGS (1)
  1. MALARONE [Suspect]
     Indication: PROPHYLAXIS
     Route: 065
     Dates: start: 20100701, end: 20100727

REACTIONS (3)
  - ASPHYXIA [None]
  - MALAISE [None]
  - ILL-DEFINED DISORDER [None]
